FAERS Safety Report 9536417 (Version 1)
Quarter: 2013Q2

REPORT INFORMATION
  Report Type: Spontaneous
  Country: US (occurrence: None)
  Receive Date: 20130507
  Receipt Date: 20130507
  Transmission Date: 20140414
  Serious: Yes (Other)
  Sender: FDA-Public Use
  Company Number: PHEH2012US024303

PATIENT
  Age: 66 Year
  Sex: Male
  Weight: 84.8 kg

DRUGS (2)
  1. AFINITOR (RAD) [Suspect]
     Indication: CARCINOID TUMOUR
     Route: 048
     Dates: start: 20110803, end: 20120725
  2. AFINITOR (RAD) [Suspect]
     Indication: METASTASIS
     Route: 048
     Dates: start: 20110803, end: 20120725

REACTIONS (2)
  - Metastatic carcinoid tumour [None]
  - Malignant neoplasm progression [None]
